FAERS Safety Report 16931134 (Version 1)
Quarter: 2019Q4

REPORT INFORMATION
  Report Type: Spontaneous
  Country: US (occurrence: US)
  Receive Date: 20191017
  Receipt Date: 20191017
  Transmission Date: 20200122
  Serious: Yes (Other)
  Sender: FDA-Public Use
  Company Number: US-COOPERSURGICAL, INC.-US-2019CPS003133

PATIENT
  Age: 43 Year
  Sex: Female
  Weight: 53.52 kg

DRUGS (1)
  1. PARAGARD T 380A [Suspect]
     Active Substance: COPPER
     Indication: CONTRACEPTION
     Dosage: UNK
     Route: 015
     Dates: start: 20080929, end: 20190716

REACTIONS (5)
  - Embedded device [Recovered/Resolved]
  - Device breakage [Recovered/Resolved]
  - Complication of device removal [Recovered/Resolved]
  - Device use issue [Recovered/Resolved]
  - Foreign body in reproductive tract [Recovered/Resolved]

NARRATIVE: CASE EVENT DATE: 20180928
